FAERS Safety Report 7735502-3 (Version None)
Quarter: 2011Q3

REPORT INFORMATION
  Report Type: 
  Country: None (occurrence: None)
  Receive Date: 20110907
  Receipt Date: 20110829
  Transmission Date: 20111222
  Serious: Yes (Other)
  Sender: FDA-Public Use
  Company Number: US-ASTRAZENECA-2011SE51816

PATIENT
  Age: 52 Year
  Sex: Female
  Weight: 56.7 kg

DRUGS (4)
  1. NEXIUM [Concomitant]
     Indication: ABDOMINAL DISCOMFORT
  2. TOPROL-XL [Concomitant]
     Indication: HYPERTENSION
  3. SEROQUEL [Suspect]
     Indication: DEPRESSION
     Route: 048
     Dates: start: 20101201
  4. CRESTOR [Concomitant]
     Indication: HYPERCHOLESTEROLAEMIA

REACTIONS (2)
  - METASTASES TO STOMACH [None]
  - METASTASES TO BONE [None]
